FAERS Safety Report 9364966 (Version 1)
Quarter: 2013Q2

REPORT INFORMATION
  Report Type: Report from Study
  Country: US (occurrence: US)
  Receive Date: 20130624
  Receipt Date: 20130624
  Transmission Date: 20140414
  Serious: Yes (Hospitalization, Other)
  Sender: FDA-Public Use
  Company Number: US-US-EMD SERONO, INC.-7219188

PATIENT
  Age: 7 Day
  Sex: Female
  Weight: 10 kg

DRUGS (1)
  1. REBIF [Suspect]
     Indication: PRODUCT USED FOR UNKNOWN INDICATION
     Route: 064

REACTIONS (7)
  - Asthma [Not Recovered/Not Resolved]
  - Pyrexia [Unknown]
  - Decreased appetite [Unknown]
  - Viral infection [Unknown]
  - Psychomotor hyperactivity [Not Recovered/Not Resolved]
  - Weight decreased [Unknown]
  - Foetal exposure during pregnancy [Recovered/Resolved]
